FAERS Safety Report 10387332 (Version 3)
Quarter: 2015Q3

REPORT INFORMATION
  Report Type: Spontaneous
  Country: US (occurrence: US)
  Receive Date: 20140815
  Receipt Date: 20150724
  Transmission Date: 20151125
  Serious: Yes (Hospitalization, Other)
  Sender: FDA-Public Use
  Company Number: US-PFIZER INC-2014226257

PATIENT
  Age: 59 Year
  Sex: Female
  Weight: 91 kg

DRUGS (8)
  1. LYRICA [Suspect]
     Active Substance: PREGABALIN
     Indication: FIBROMYALGIA
     Dosage: 150 MG, 2X/DAY
     Route: 048
     Dates: start: 2012, end: 20140501
  2. BUSPIRONE [Concomitant]
     Active Substance: BUSPIRONE HYDROCHLORIDE
     Dosage: UNK
     Dates: start: 201201
  3. VISTARIL [Concomitant]
     Active Substance: HYDROXYZINE PAMOATE
     Dosage: UNK
     Dates: start: 2012
  4. EFFEXOR [Concomitant]
     Active Substance: VENLAFAXINE HYDROCHLORIDE
     Indication: DEPRESSION
     Dosage: UNK
     Dates: start: 2012
  5. LYRICA [Suspect]
     Active Substance: PREGABALIN
     Dosage: 150 MG, UNK
     Route: 048
  6. FLEXERIL [Concomitant]
     Active Substance: CYCLOBENZAPRINE HYDROCHLORIDE
     Dosage: UNK
     Dates: start: 201412
  7. MELOXICAM. [Concomitant]
     Active Substance: MELOXICAM
     Dosage: UNK
     Dates: start: 2012
  8. LISINOPRIL AND HYDROCHLOROTHIAZIDE [Concomitant]
     Active Substance: HYDROCHLOROTHIAZIDE\LISINOPRIL
     Dosage: UNK
     Dates: start: 2012

REACTIONS (23)
  - Mental impairment [Recovered/Resolved]
  - Bacterial infection [Recovered/Resolved]
  - Feeling of body temperature change [Unknown]
  - Agitation [Recovered/Resolved]
  - Dry mouth [Recovered/Resolved]
  - Fatigue [Recovered/Resolved]
  - Activities of daily living impaired [Recovered/Resolved]
  - Pain [Recovered/Resolved]
  - Foot deformity [Recovered/Resolved]
  - Vomiting [Recovered/Resolved]
  - Withdrawal syndrome [Recovered/Resolved]
  - Malaise [Recovered/Resolved]
  - Muscle spasms [Recovered/Resolved]
  - Palpitations [Recovered/Resolved]
  - Restless legs syndrome [Recovered/Resolved]
  - Weight increased [Not Recovered/Not Resolved]
  - Pain in extremity [Not Recovered/Not Resolved]
  - Nerve compression [Recovered/Resolved]
  - Joint stiffness [Recovered/Resolved]
  - Limb discomfort [Recovered/Resolved]
  - Visual impairment [Recovered/Resolved]
  - Photophobia [Recovered/Resolved]
  - Musculoskeletal pain [Not Recovered/Not Resolved]

NARRATIVE: CASE EVENT DATE: 201412
